FAERS Safety Report 5374470-9 (Version None)
Quarter: 2007Q2

REPORT INFORMATION
  Report Type: 
  Country: None (occurrence: None)
  Receive Date: 20070629
  Receipt Date: 20070622
  Transmission Date: 20071010
  Serious: Yes (Other)
  Sender: FDA-Public Use
  Company Number: ES-JNJFOC-20070605740

PATIENT

DRUGS (2)
  1. HALOPERIDOL [Suspect]
     Indication: AGGRESSION
  2. HALOPERIDOL [Suspect]
     Indication: DEMENTIA ALZHEIMER'S TYPE

REACTIONS (1)
  - DERMATITIS EXFOLIATIVE [None]
